FAERS Safety Report 4477162-3 (Version None)
Quarter: 2004Q4

REPORT INFORMATION
  Report Type: 
  Country: None (occurrence: None)
  Receive Date: 20041012
  Receipt Date: 20041001
  Transmission Date: 20050328
  Serious: Yes (Other)
  Sender: FDA-Public Use
  Company Number: 163-20785-04100125

PATIENT
  Sex: 0

DRUGS (2)
  1. THALOMID [Suspect]
     Indication: GLIOBLASTOMA MULTIFORME
     Dosage: 200 MG PO QD W/TITRATION OF 100-200MG QD Q 1-2 WKS UP TO 1200MG DAILY, DAILY, ORAL
     Route: 048
  2. RADIATION THERAPY [Suspect]
     Indication: GLIOBLASTOMA MULTIFORME
     Dosage: TOTAL DOSE = 60 GY OVER 6 WEEKS

REACTIONS (2)
  - PRURITUS [None]
  - RECALL PHENOMENON [None]
